FAERS Safety Report 9869225 (Version 2)
Quarter: 2014Q1

REPORT INFORMATION
  Report Type: Report from Study
  Country: KR (occurrence: KR)
  Receive Date: 20140205
  Receipt Date: 20140207
  Transmission Date: 20141002
  Serious: Yes (Hospitalization)
  Sender: FDA-Public Use
  Company Number: PHHO2014KR001512

PATIENT
  Sex: 0

DRUGS (16)
  1. AFINITOR [Suspect]
     Indication: BREAST CANCER METASTATIC
     Dosage: 10 MG, QD
     Route: 048
     Dates: start: 20131104, end: 20140119
  2. AFINITOR [Suspect]
     Dosage: 10 MG, QD
     Route: 048
     Dates: start: 20140123
  3. EXEMESTANE [Suspect]
     Indication: BREAST CANCER METASTATIC
     Dosage: 25 MG, QD
     Route: 048
     Dates: start: 20131104, end: 20140119
  4. EXEMESTANE [Suspect]
     Dosage: 25 MG, QD
     Route: 048
     Dates: start: 20140123
  5. ASTRIX [Suspect]
     Indication: HYPERTENSION
     Dosage: 100 MG, QD
     Route: 048
     Dates: start: 20121113, end: 20140119
  6. SIGMART [Concomitant]
     Indication: ANGINA PECTORIS
     Dosage: 5 MG, QD
     Route: 048
     Dates: start: 20121116, end: 20140119
  7. DILATREND [Concomitant]
     Indication: HYPERTENSION
     Dosage: 6.5 MG, QD
     Route: 048
     Dates: end: 20140113
  8. DILATREND [Concomitant]
     Dosage: 12.5 MG, QD
     Route: 048
     Dates: start: 20140114, end: 20140119
  9. LIPITOR [Concomitant]
     Indication: HYPERCHOLESTEROLAEMIA
     Dosage: 10 MG, QD
     Route: 048
     Dates: end: 20140119
  10. LIVALO [Concomitant]
     Indication: HYPERCHOLESTEROLAEMIA
     Dosage: 2 MG, QD
     Route: 048
     Dates: start: 20140114, end: 20140119
  11. EXFORGE [Concomitant]
     Indication: HYPERTENSION
     Dosage: 5/80 MG QD
     Route: 048
     Dates: end: 20140113
  12. MUCOSTA [Concomitant]
     Indication: PROPHYLAXIS
     Dosage: 200 MG, TID
     Route: 048
     Dates: end: 20140113
  13. JOINSTOP [Concomitant]
     Indication: ARTHRITIS
     Dosage: 200 MG, TID
     Route: 048
     Dates: end: 20140113
  14. STILLEN [Concomitant]
     Indication: PROPHYLAXIS
     Dosage: 60 MG, QD
     Route: 048
     Dates: start: 20140114, end: 20140119
  15. VAXAR//LACIDIPINE [Concomitant]
     Indication: HYPERTENSION
     Dosage: 4 MG, QD
     Route: 048
     Dates: start: 20140113, end: 20140119
  16. ZYLORIC [Concomitant]
     Indication: BLOOD URIC ACID INCREASED
     Dosage: 100 MG, QD
     Route: 048
     Dates: start: 20140114, end: 20140119

REACTIONS (1)
  - Gastric ulcer [Recovering/Resolving]
